FAERS Safety Report 6665899-7 (Version None)
Quarter: 2010Q1

REPORT INFORMATION
  Report Type: 
  Country: None (occurrence: None)
  Receive Date: 20100326
  Receipt Date: 20090713
  Transmission Date: 20100710
  Serious: Yes (Other)
  Sender: FDA-Public Use
  Company Number: 2009SU0155

PATIENT
  Age: 74 Year
  Sex: Male

DRUGS (1)
  1. SULAR [Suspect]
     Indication: HYPERTENSION
     Dates: start: 20090101

REACTIONS (4)
  - ANXIETY [None]
  - DEPRESSION [None]
  - DRUG INEFFECTIVE [None]
  - INSOMNIA [None]
